FAERS Safety Report 9722707 (Version 2)
Quarter: 2013Q4

REPORT INFORMATION
  Report Type: Spontaneous
  Country: NO (occurrence: NO)
  Receive Date: 20131202
  Receipt Date: 20131211
  Transmission Date: 20140711
  Serious: Yes (Disabling, Other)
  Sender: FDA-Public Use
  Company Number: NO-ASTRAZENECA-2013SE86531

PATIENT
  Sex: Female
  Weight: 43 kg

DRUGS (18)
  1. BUPIVAKAIN [Suspect]
     Dosage: 100 MG
     Route: 008
  2. EPINEPHRINE [Suspect]
     Route: 008
  3. LIDOKAIN WITH EPINEPHRINE [Suspect]
     Dosage: DOSE WITH 3 ML LIDOCAINE (10 MG/ML) WITH EPINEPHRINE WAS ADMINISTERED FIRST.
     Route: 008
  4. LIDOKAIN WITH EPINEPHRINE [Suspect]
     Dosage: A LOADING DOSE OF 6 ML WAS GIVEN AT 8:50 AM AND THEN EPIDURAL INFUSION WITH 7 ML/HOUR.
     Route: 008
  5. LIDOKAIN WITH EPINEPHRINE [Suspect]
     Dosage: AN ADDITIONAL BOLUS DOSE OF 3 ML AT 11:35 AM WAS GIVEN.
     Route: 008
  6. FENTANYL [Suspect]
     Route: 008
  7. NESACAINE [Suspect]
     Dosage: 15 ML, 30 MG/ML WAS INJECTED AT 3 PM
     Route: 065
  8. RINGER ACETAT [Concomitant]
     Dosage: 3000 ML
  9. CEPHALOTIN [Concomitant]
     Dosage: 2 G
  10. SODIUM CITRATE [Concomitant]
  11. EPHEDRINE [Concomitant]
     Dosage: 10 MG
  12. PHENYLEPHRINE HYDROCHLORIDE [Concomitant]
     Dosage: 0.1 MG
  13. ATROPINE [Concomitant]
     Dosage: 0.5 MG
  14. PITOCIN [Concomitant]
     Dosage: 5 I.U
  15. PERFALGAN [Concomitant]
     Dosage: 1000 MG
  16. PETIDIN [Concomitant]
     Dosage: 25 MG
  17. KETOBEMIDON [Concomitant]
     Dosage: 7.5 MG
  18. GLUCOSE [Concomitant]
     Dosage: 1000 ML

REACTIONS (13)
  - Headache [Unknown]
  - Arthralgia [Unknown]
  - Neck pain [Unknown]
  - Back pain [Unknown]
  - Meningitis [Unknown]
  - Sensory loss [Unknown]
  - Hypotension [Unknown]
  - Motor dysfunction [Unknown]
  - Paraesthesia [Unknown]
  - Pelvic pain [Unknown]
  - Intervertebral disc protrusion [Unknown]
  - Anaesthetic complication [Unknown]
  - Nervous system disorder [Unknown]
